FAERS Safety Report 15920386 (Version 1)
Quarter: 2019Q1

REPORT INFORMATION
  Report Type: Spontaneous
  Country: CN (occurrence: CN)
  Receive Date: 20190205
  Receipt Date: 20190205
  Transmission Date: 20190417
  Serious: Yes (Other)
  Sender: FDA-Public Use
  Company Number: CN-ASTRAZENECA-2019SE18831

PATIENT
  Age: 64 Year
  Sex: Female
  Weight: 50 kg

DRUGS (2)
  1. CRESTOR [Suspect]
     Active Substance: ROSUVASTATIN CALCIUM
     Indication: CORNEAL DEPOSITS
     Route: 048
     Dates: start: 20181230, end: 20190114
  2. CRESTOR [Suspect]
     Active Substance: ROSUVASTATIN CALCIUM
     Indication: LIPIDS ABNORMAL
     Route: 048
     Dates: start: 20181230, end: 20190114

REACTIONS (1)
  - Drug-induced liver injury [Recovering/Resolving]
